FAERS Safety Report 14092307 (Version 1)
Quarter: 2017Q4

REPORT INFORMATION
  Report Type: Spontaneous
  Country: US (occurrence: US)
  Receive Date: 20171015
  Receipt Date: 20171015
  Transmission Date: 20180321
  Serious: Yes (Other)
  Sender: FDA-Public Use
  Company Number: None

PATIENT
  Age: 36 Year
  Sex: Female
  Weight: 78.75 kg

DRUGS (8)
  1. TRAZODONE [Concomitant]
     Active Substance: TRAZODONE HYDROCHLORIDE
  2. PANTOPRAZOLE [Concomitant]
     Active Substance: PANTOPRAZOLE
  3. LAMOTRIGINE TABLETS, USP [Suspect]
     Active Substance: LAMOTRIGINE
     Indication: BIPOLAR DISORDER
     Dosage: ?          QUANTITY:2 TABLET(S);?
     Route: 048
     Dates: start: 20170818, end: 20170915
  4. HAIR, SKIN, + NAIL SUPPLEMENT [Concomitant]
  5. LITHIUM. [Concomitant]
     Active Substance: LITHIUM
  6. FISH OIL + VITAMIN D [Concomitant]
  7. TOPIRAMATE. [Concomitant]
     Active Substance: TOPIRAMATE
  8. CLONAZEPAM. [Concomitant]
     Active Substance: CLONAZEPAM

REACTIONS (5)
  - Suicidal ideation [None]
  - Product substitution issue [None]
  - Depression [None]
  - Drug ineffective [None]
  - Depressed mood [None]

NARRATIVE: CASE EVENT DATE: 20170818
